FAERS Safety Report 10224540 (Version 1)
Quarter: 2014Q2

REPORT INFORMATION
  Report Type: Spontaneous
  Country: US (occurrence: US)
  Receive Date: 20140609
  Receipt Date: 20140609
  Transmission Date: 20141212
  Serious: No
  Sender: FDA-Public Use
  Company Number: US-BAYER-2014-084703

PATIENT
  Age: 77 Year
  Sex: Female
  Weight: 66 kg

DRUGS (5)
  1. ALEVE CAPLET [Suspect]
     Indication: ARTHRITIS
     Dosage: UNK
     Route: 048
     Dates: start: 2012, end: 2012
  2. ALEVE CAPLET [Suspect]
     Indication: ARTHRITIS
  3. VANQUISH [Suspect]
     Indication: ARTHRITIS
     Dosage: UNK UNK, PRN
     Route: 048
     Dates: start: 1964
  4. VANQUISH [Suspect]
     Indication: ARTHRITIS
     Dosage: 1 1/2 TABLETS IN THE MORNING AND 1 TABLET IN THE AFTERNOON.
     Route: 048
     Dates: start: 2001
  5. SYNTHROID [Concomitant]

REACTIONS (2)
  - Tinnitus [Recovered/Resolved]
  - Incorrect drug administration duration [Not Recovered/Not Resolved]
